FAERS Safety Report 8831500 (Version 1)
Quarter: 2012Q4

REPORT INFORMATION
  Report Type: 
  Country: US (occurrence: US)
  Receive Date: 20121009
  Receipt Date: 20121009
  Transmission Date: 20130627
  Serious: No
  Sender: FDA-Public Use
  Company Number: US-ASTRAZENECA-2012SE73165

PATIENT
  Age: 75 Year
  Sex: Male
  Weight: 117.9 kg

DRUGS (3)
  1. PULMICORT FLEXHALER [Suspect]
     Indication: DYSPNOEA
     Dosage: 180 MCG, 2 PUFFS BID
     Route: 055
     Dates: start: 20120918
  2. CLONIDINE [Concomitant]
  3. WARFARIN [Concomitant]

REACTIONS (5)
  - Dyspnoea [Unknown]
  - Dysgeusia [Unknown]
  - Oropharyngeal pain [Unknown]
  - Dysphonia [Unknown]
  - Drug ineffective [Unknown]
